FAERS Safety Report 4440264-1 (Version None)
Quarter: 2004Q3

REPORT INFORMATION
  Report Type: 
  Country: None (occurrence: None)
  Receive Date: 20040903
  Receipt Date: 20040430
  Transmission Date: 20050211
  Serious: No
  Sender: FDA-Public Use
  Company Number: US-GLAXOSMITHKLINE-A0509135A

PATIENT
  Sex: Male

DRUGS (10)
  1. REQUIP [Suspect]
     Indication: RESTLESS LEGS SYNDROME
     Dosage: 2MG FOUR TIMES PER DAY
     Route: 048
  2. MAXZIDE [Concomitant]
  3. SERZONE [Concomitant]
  4. PREVACID [Concomitant]
  5. VITAMIN E [Concomitant]
  6. VITAMIN C [Concomitant]
  7. GLUCOSAMINE [Concomitant]
  8. BUSPAR [Concomitant]
  9. ASPIRIN [Concomitant]
  10. CARDURA [Concomitant]

REACTIONS (1)
  - DRUG INEFFECTIVE [None]
